FAERS Safety Report 7433204-4 (Version None)
Quarter: 2011Q2

REPORT INFORMATION
  Report Type: 
  Country: None (occurrence: None)
  Receive Date: 20110422
  Receipt Date: 20110411
  Transmission Date: 20111010
  Serious: Yes (Other)
  Sender: FDA-Public Use
  Company Number: PHHY2011US30508

PATIENT
  Sex: Female

DRUGS (4)
  1. DIOVAN HCT [Suspect]
     Dosage: 360 MG VALS AND 25 MG HYDR 03 OR 4 PILLS
  2. DOXEPIN [Concomitant]
  3. ASPIRIN [Concomitant]
  4. DIOVAN HCT [Suspect]
     Indication: HYPERTENSION
     Dosage: 360 MG VALS AND 25 MG HYDR 02 PILLS

REACTIONS (3)
  - LUNG INFILTRATION [None]
  - DYSPNOEA [None]
  - INCORRECT DOSE ADMINISTERED [None]
